FAERS Safety Report 9006029 (Version 1)
Quarter: 2013Q1

REPORT INFORMATION
  Report Type: Spontaneous
  Country: GB (occurrence: GB)
  Receive Date: 20130109
  Receipt Date: 20130109
  Transmission Date: 20140127
  Serious: Yes (Hospitalization)
  Sender: FDA-Public Use
  Company Number: PHHY2013GB001765

PATIENT
  Age: 53 Year
  Sex: Male
  Weight: 69 kg

DRUGS (4)
  1. FLUOROURACIL [Suspect]
     Indication: COLORECTAL CANCER METASTATIC
  2. FOLINIC ACID [Suspect]
     Indication: COLORECTAL CANCER METASTATIC
  3. ELOXATIN [Suspect]
     Indication: COLORECTAL CANCER METASTATIC
  4. IRINOTECAN [Suspect]
     Indication: COLORECTAL CANCER METASTATIC

REACTIONS (7)
  - Orchitis [Recovered/Resolved]
  - Pyrexia [Recovered/Resolved]
  - Hydrocele [Recovered/Resolved]
  - Scrotal swelling [Recovered/Resolved]
  - Pain [Recovered/Resolved]
  - Hyperaemia [Recovered/Resolved]
  - Testicular disorder [Recovered/Resolved]
